FAERS Safety Report 8208521-0 (Version None)
Quarter: 2012Q1

REPORT INFORMATION
  Report Type: 
  Country: None (occurrence: None)
  Receive Date: 20120314
  Receipt Date: 20120229
  Transmission Date: 20120608
  Serious: Yes (Other)
  Sender: FDA-Public Use
  Company Number: DE-ROCHE-1045038

PATIENT
  Sex: Male

DRUGS (8)
  1. AVASTIN [Suspect]
     Indication: ADENOCARCINOMA
     Route: 042
     Dates: start: 20100801, end: 20101001
  2. FLUOROURACIL [Concomitant]
     Dates: start: 20110101
  3. FLUOROURACIL [Concomitant]
     Indication: PRODUCT USED FOR UNKNOWN INDICATION
     Dates: start: 20100801, end: 20101001
  4. IRINOTECAN HCL [Concomitant]
     Indication: PRODUCT USED FOR UNKNOWN INDICATION
  5. AVASTIN [Suspect]
     Route: 042
     Dates: start: 20110101
  6. LEUCOVORIN CALCIUM [Concomitant]
     Dates: start: 20110101
  7. OXALIPLATIN [Concomitant]
     Indication: PRODUCT USED FOR UNKNOWN INDICATION
     Dates: start: 20100801, end: 20101001
  8. LEUCOVORIN CALCIUM [Concomitant]
     Indication: PRODUCT USED FOR UNKNOWN INDICATION
     Dates: start: 20100801, end: 20101001

REACTIONS (5)
  - LOBAR PNEUMONIA [None]
  - PORTAL VEIN THROMBOSIS [None]
  - PLEURAL EFFUSION [None]
  - PNEUMOTHORAX TRAUMATIC [None]
  - DISEASE PROGRESSION [None]
